FAERS Safety Report 7217271-9 (Version None)
Quarter: 2011Q1

REPORT INFORMATION
  Report Type: 
  Country: None (occurrence: None)
  Receive Date: 20110110
  Receipt Date: 20101220
  Transmission Date: 20110831
  Serious: No
  Sender: FDA-Public Use
  Company Number: US-B.I. PHARMACEUTICALS,INC./RIDGEFIELD-2010-BP-15158BP

PATIENT
  Age: 87 Year
  Sex: Male

DRUGS (7)
  1. XALATAN [Concomitant]
     Indication: GLAUCOMA
  2. ALLOPURINOL [Concomitant]
     Indication: GOUT
  3. AZOPT [Concomitant]
     Indication: GLAUCOMA
  4. ALTACE [Concomitant]
  5. PRADAXA [Suspect]
     Indication: ATRIAL FIBRILLATION
     Dosage: 300 MG
     Route: 048
     Dates: start: 20101219
  6. ZOCOR [Concomitant]
     Indication: BLOOD CHOLESTEROL INCREASED
  7. AMLODIPINE [Concomitant]

REACTIONS (1)
  - FEELING ABNORMAL [None]
